FAERS Safety Report 5960519-9 (Version None)
Quarter: 2008Q4

REPORT INFORMATION
  Report Type: 
  Country: None (occurrence: None)
  Receive Date: 20081120
  Receipt Date: 20080407
  Transmission Date: 20090506
  Serious: No
  Sender: FDA-Public Use
  Company Number: US-ABBOTT-08P-163-0444985-00

PATIENT
  Age: 47 Year
  Sex: Male

DRUGS (2)
  1. CLARITHROMYCIN [Suspect]
     Indication: LUNG INFECTION
     Route: 048
     Dates: start: 20080201, end: 20080201
  2. DURAVENT [Concomitant]
     Indication: LUNG INFECTION
     Route: 048
     Dates: start: 20080201, end: 20080201

REACTIONS (4)
  - ABDOMINAL DISCOMFORT [None]
  - DIARRHOEA [None]
  - GASTRIC DISORDER [None]
  - NAUSEA [None]
